FAERS Safety Report 19078818 (Version 1)
Quarter: 2021Q1

REPORT INFORMATION
  Report Type: Spontaneous
  Country: CA (occurrence: CA)
  Receive Date: 20210331
  Receipt Date: 20210331
  Transmission Date: 20210420
  Serious: Yes (Other)
  Sender: FDA-Public Use
  Company Number: CA-TEVA-2021-CA-1893045

PATIENT
  Sex: Female

DRUGS (1)
  1. TAMOXIFEN [Suspect]
     Active Substance: TAMOXIFEN
     Dosage: 3 CYCLES
     Dates: start: 2014, end: 2017

REACTIONS (4)
  - Arthralgia [Unknown]
  - Candida infection [Unknown]
  - Disease progression [Unknown]
  - Vulvovaginal dryness [Unknown]
